FAERS Safety Report 10392489 (Version 2)
Quarter: 2014Q4

REPORT INFORMATION
  Report Type: Spontaneous
  Country: FR (occurrence: FR)
  Receive Date: 20140819
  Receipt Date: 20141112
  Transmission Date: 20150528
  Serious: Yes (Hospitalization, Other)
  Sender: FDA-Public Use
  Company Number: FR-ELI_LILLY_AND_COMPANY-FR201408002484

PATIENT
  Age: 54 Year
  Sex: Male

DRUGS (10)
  1. SPECIAFOLDINE [Concomitant]
     Active Substance: FOLIC ACID
     Dosage: 1 DF, EACH EVENING
     Route: 065
  2. APROVEL [Concomitant]
     Active Substance: IRBESARTAN
     Dosage: 150 MG, EACH MORNING
     Route: 065
  3. ALIMTA [Suspect]
     Active Substance: PEMETREXED DISODIUM
     Indication: NON-SMALL CELL LUNG CANCER
     Dosage: UNK, CYCLICAL EVERY 3 WEEKS
     Route: 042
     Dates: start: 20131217, end: 20140521
  4. CISPLATINE [Suspect]
     Active Substance: CISPLATIN
     Dosage: 1 G, UNKNOWN
     Route: 065
     Dates: start: 20140318
  5. OMEPRAZOLE. [Concomitant]
     Active Substance: OMEPRAZOLE
     Dosage: 20 MG, EACH EVENING
     Route: 065
  6. CISPLATINE [Suspect]
     Active Substance: CISPLATIN
     Indication: NON-SMALL CELL LUNG CANCER STAGE IV
     Dosage: UNK, CYCLICAL EVERY 3 WEEKS
     Route: 065
     Dates: start: 20131217, end: 20140225
  7. SOLUPRED                           /00016201/ [Concomitant]
     Active Substance: PREDNISOLONE
     Indication: PREMEDICATION
     Dosage: UNK, UNKNOWN
     Route: 065
  8. VITAMIN B12 [Concomitant]
     Active Substance: CYANOCOBALAMIN
     Dosage: UNK, EVERY 9 WEEKS
     Route: 065
  9. XANAX [Concomitant]
     Active Substance: ALPRAZOLAM
     Dosage: 0.25 MG, EACH EVENING
     Route: 065
  10. XANAX [Concomitant]
     Active Substance: ALPRAZOLAM
     Dosage: 0.25 MG, DURING THE DAY, PRN
     Route: 065

REACTIONS (16)
  - Anaemia macrocytic [Unknown]
  - Balance disorder [Unknown]
  - Hypergammaglobulinaemia benign monoclonal [Unknown]
  - Asthenia [Unknown]
  - Leukocytosis [Unknown]
  - Blood pressure increased [Unknown]
  - Electrocardiogram T wave peaked [Unknown]
  - Hyperkalaemia [Recovered/Resolved]
  - Normochromic normocytic anaemia [Unknown]
  - Benign prostatic hyperplasia [Unknown]
  - Gastrointestinal disorder [Unknown]
  - Bladder disorder [Unknown]
  - Chronic kidney disease [Unknown]
  - Malignant neoplasm progression [Unknown]
  - Heart rate increased [Unknown]
  - Vertigo [Unknown]

NARRATIVE: CASE EVENT DATE: 20140225
